FAERS Safety Report 13932534 (Version 1)
Quarter: 2017Q3

REPORT INFORMATION
  Report Type: Spontaneous
  Country: RU (occurrence: RU)
  Receive Date: 20170904
  Receipt Date: 20170904
  Transmission Date: 20171127
  Serious: Yes (Life-Threatening)
  Sender: FDA-Public Use
  Company Number: RU-ROCHE-1974388

PATIENT
  Age: 21 Month
  Sex: Male
  Weight: 9.3 kg

DRUGS (10)
  1. ACTEMRA [Suspect]
     Active Substance: TOCILIZUMAB
     Indication: STILL^S DISEASE
     Route: 041
     Dates: start: 20170704, end: 20170720
  2. SOLU-MEDROL [Concomitant]
     Active Substance: METHYLPREDNISOLONE SODIUM SUCCINATE
     Indication: STILL^S DISEASE
     Dosage: NEXT DOSES: 29/JUN/2017, 30/JUN/2017, 01/JUL/2017, 03/JUL/2017, 04/JUL/2017, 05/JUL/2017, 20/JUL/201
     Route: 042
     Dates: start: 20170629, end: 20170720
  3. PREDNISONE. [Concomitant]
     Active Substance: PREDNISONE
     Dosage: 5 MG 800 -1 TAB,NOON -1 TABLE
     Route: 065
     Dates: start: 20170706, end: 20170720
  4. KLACID [Concomitant]
     Active Substance: CLARITHROMYCIN
     Indication: RESPIRATORY TRACT INFECTION VIRAL
     Dosage: SUSPENSION, SUSPENSION 125/5 ML) FOR 2.5 ML X TWICE PER DAY
     Route: 048
     Dates: start: 20170718, end: 20170729
  5. FOLIC ACID. [Concomitant]
     Active Substance: FOLIC ACID
     Dosage: 0.001 TO 1 TAB DAILY
     Route: 065
     Dates: start: 20170703, end: 20170810
  6. CHLOROPYRAMINE [Concomitant]
     Active Substance: CHLOROPYRAMINE
     Dosage: 25 MG TABLETS X 2.25 TIMES PER DAY
     Route: 065
     Dates: start: 20170707, end: 20170718
  7. PREDNISOLONE. [Concomitant]
     Active Substance: PREDNISOLONE
     Indication: STILL^S DISEASE
     Route: 048
     Dates: start: 20170706
  8. METIPRED [Concomitant]
     Active Substance: METHYLPREDNISOLONE
     Dosage: METIPRED (4 MG) 800 -1 TAB,AFTERNOON-1 TAB
     Route: 065
     Dates: start: 20170702, end: 20170703
  9. MALTOFER (RUSSIA) [Concomitant]
     Dosage: 20 DROPS DAILY
     Route: 048
     Dates: start: 20170703, end: 20170708
  10. PREDNISONE. [Concomitant]
     Active Substance: PREDNISONE
     Dosage: 5 MG 800 -2 TABLE,NOON -1 TABLE, 1600 -1 TAB
     Route: 065
     Dates: start: 20170721, end: 20170729

REACTIONS (6)
  - Body temperature increased [Recovered/Resolved]
  - Chills [Recovered/Resolved]
  - Hyperglycaemia [Recovered/Resolved]
  - Tachycardia [Recovered/Resolved]
  - Cyanosis [Recovered/Resolved]
  - Respiratory tract infection viral [Recovered/Resolved]

NARRATIVE: CASE EVENT DATE: 20170718
